FAERS Safety Report 9734827 (Version 3)
Quarter: 2014Q2

REPORT INFORMATION
  Report Type: Spontaneous
  Country: DE (occurrence: DE)
  Receive Date: 20131206
  Receipt Date: 20140616
  Transmission Date: 20141212
  Serious: Yes (Other)
  Sender: FDA-Public Use
  Company Number: DE-ABBVIE-13P-062-1175267-00

PATIENT
  Age: 70 Year
  Sex: Male
  Weight: 106 kg

DRUGS (9)
  1. HUMIRA [Suspect]
     Indication: RHEUMATOID ARTHRITIS
     Route: 058
     Dates: start: 201205, end: 201308
  2. MTX [Suspect]
     Indication: RHEUMATOID ARTHRITIS
     Dates: start: 200804, end: 200907
  3. MTX [Suspect]
     Dates: end: 201108
  4. SULFASALAZIN [Suspect]
     Indication: RHEUMATOID ARTHRITIS
     Dates: start: 200804, end: 200907
  5. SULFASALAZIN [Suspect]
     Dates: start: 200908, end: 201108
  6. SULFASALAZIN [Suspect]
     Dates: end: 201205
  7. ETORCOXIB [Concomitant]
     Indication: PRODUCT USED FOR UNKNOWN INDICATION
     Route: 048
  8. CONCOR COR [Concomitant]
     Indication: HYPERTENSION
     Route: 048
  9. ACERCOMP [Concomitant]
     Indication: HYPERTENSION
     Route: 048

REACTIONS (1)
  - Myelodysplastic syndrome [Not Recovered/Not Resolved]
